FAERS Safety Report 6169220-2 (Version None)
Quarter: 2009Q2

REPORT INFORMATION
  Report Type: 
  Country: None (occurrence: None)
  Receive Date: 20090424
  Receipt Date: 20090414
  Transmission Date: 20091009
  Serious: Yes (Hospitalization)
  Sender: FDA-Public Use
  Company Number: 232972K09USA

PATIENT
  Age: 37 Year
  Sex: Female

DRUGS (8)
  1. REBIF [Suspect]
     Indication: MULTIPLE SCLEROSIS
     Dosage: 22 MCG, 3 IN 1 WEEKS, SUBCUTANEOUS
     Route: 058
     Dates: start: 20081014
  2. NEURONTIN [Concomitant]
  3. BACLOFEN [Concomitant]
  4. FLEXERIL [Concomitant]
  5. OTHER UNSPECIFIED MEDICATIONS (ALL OTHER THERAPEUTIC PRODUCTS) [Concomitant]
  6. IBUPROFEN [Concomitant]
  7. NAPROXEN [Concomitant]
  8. BUPROPION HCL [Concomitant]

REACTIONS (4)
  - DEHYDRATION [None]
  - HYPERTENSION [None]
  - RENAL FAILURE ACUTE [None]
  - URINARY RETENTION [None]
